FAERS Safety Report 18155874 (Version 1)
Quarter: 2020Q3

REPORT INFORMATION
  Report Type: Spontaneous
  Country: US (occurrence: US)
  Receive Date: 20200814
  Receipt Date: 20200814
  Transmission Date: 20201103
  Serious: Yes (Other)
  Sender: FDA-Public Use
  Company Number: None

PATIENT
  Age: 50 Year
  Sex: Female
  Weight: 68.85 kg

DRUGS (1)
  1. NP THYROID [Suspect]
     Active Substance: LEVOTHYROXINE\LIOTHYRONINE
     Indication: THYROID DISORDER
     Dosage: ?          QUANTITY:180 TABLET(S);?
     Route: 048
     Dates: start: 20200211, end: 20200319

REACTIONS (6)
  - Fluid retention [None]
  - Palpitations [None]
  - Fatigue [None]
  - Spider vein [None]
  - Vein rupture [None]
  - Oedema [None]

NARRATIVE: CASE EVENT DATE: 20200323
